FAERS Safety Report 22797129 (Version 2)
Quarter: 2024Q1

REPORT INFORMATION
  Report Type: Report from Study
  Country: US (occurrence: US)
  Receive Date: 20230808
  Receipt Date: 20240311
  Transmission Date: 20240409
  Serious: Yes (Other)
  Sender: FDA-Public Use
  Company Number: US-ABBVIE-5356185

PATIENT
  Sex: Female

DRUGS (1)
  1. SKYRIZI [Suspect]
     Active Substance: RISANKIZUMAB-RZAA
     Indication: Psoriasis
     Route: 058
     Dates: start: 20230104

REACTIONS (8)
  - Aortic stenosis [Unknown]
  - Memory impairment [Not Recovered/Not Resolved]
  - Oesophageal dilation procedure [Unknown]
  - Pulmonary oedema [Unknown]
  - Arrhythmia [Unknown]
  - Cardiac disorder [Unknown]
  - Chest pain [Unknown]
  - Peripheral swelling [Unknown]

NARRATIVE: CASE EVENT DATE: 20230101
